FAERS Safety Report 10189930 (Version 1)
Quarter: 2014Q2

REPORT INFORMATION
  Report Type: Spontaneous
  Country: PT (occurrence: PT)
  Receive Date: 20140522
  Receipt Date: 20140522
  Transmission Date: 20141212
  Serious: Yes (Life-Threatening, Hospitalization)
  Sender: FDA-Public Use
  Company Number: PT-B.I. PHARMACEUTICALS,INC./RIDGEFIELD-2014-BI-22371PO

PATIENT
  Age: 88 Year
  Sex: Female

DRUGS (7)
  1. PRADAXA [Suspect]
     Indication: ATRIAL FIBRILLATION
     Dosage: 220 MG
     Route: 048
     Dates: end: 20140211
  2. PRADAXA [Suspect]
     Indication: MYOCARDIAL ISCHAEMIA
  3. EXXIV [Suspect]
     Indication: PAIN
     Route: 048
     Dates: end: 20140211
  4. CORDARONE [Suspect]
     Indication: ATRIAL FIBRILLATION
     Route: 048
     Dates: start: 201207
  5. LASIX [Concomitant]
     Indication: MYOCARDIAL ISCHAEMIA
     Route: 048
     Dates: end: 20140220
  6. ZALDIAR [Concomitant]
     Indication: PAIN
     Dosage: ZALDIAR / PARACETAMOL + TRAMADOL HYDROCHLORIDE
     Route: 048
  7. NITRODERM TTS 5 [Concomitant]
     Indication: MYOCARDIAL ISCHAEMIA
     Dosage: NITRODERM TTS 5 / NITROGLYCERIN
     Route: 065

REACTIONS (4)
  - Anaemia [Not Recovered/Not Resolved]
  - Contraindication to medical treatment [Unknown]
  - Melaena [Recovered/Resolved]
  - Haematochezia [Recovered/Resolved]
